FAERS Safety Report 6749190-6 (Version None)
Quarter: 2010Q2

REPORT INFORMATION
  Report Type: 
  Country: None (occurrence: None)
  Receive Date: 20100601
  Receipt Date: 20100526
  Transmission Date: 20101027
  Serious: Yes (Death, Hospitalization)
  Sender: FDA-Public Use
  Company Number: DE-SANOFI-AVENTIS-2010SA030198

PATIENT
  Sex: Female

DRUGS (4)
  1. TAXOTERE [Suspect]
     Indication: BREAST CANCER
     Route: 041
  2. TAXOTERE [Suspect]
     Route: 041
  3. TRASTUZUMAB [Concomitant]
     Indication: BREAST CANCER
     Route: 041
  4. TRASTUZUMAB [Concomitant]
     Route: 041

REACTIONS (1)
  - FEBRILE NEUTROPENIA [None]
